FAERS Safety Report 4595496-9 (Version None)
Quarter: 2005Q1

REPORT INFORMATION
  Report Type: 
  Country: None (occurrence: None)
  Receive Date: 20050302
  Receipt Date: 20050222
  Transmission Date: 20050727
  Serious: Yes (Other)
  Sender: FDA-Public Use
  Company Number: US-JNJFOC-20041005623

PATIENT
  Sex: Male
  Weight: 98.88 kg

DRUGS (1)
  1. REMICADE [Suspect]
     Route: 042

REACTIONS (2)
  - ARTHRITIS BACTERIAL [None]
  - LUPUS-LIKE SYNDROME [None]
